FAERS Safety Report 14667356 (Version 1)
Quarter: 2018Q1

REPORT INFORMATION
  Report Type: Spontaneous
  Country: FR (occurrence: FR)
  Receive Date: 20180322
  Receipt Date: 20180322
  Transmission Date: 20180509
  Serious: Yes (Other)
  Sender: FDA-Public Use
  Company Number: FR-MERCK KGAA-2044285

PATIENT
  Age: 64 Year
  Sex: Female

DRUGS (1)
  1. NOVOTHYROX [Suspect]
     Active Substance: LEVOTHYROXINE SODIUM
     Indication: HYPOTHYROIDISM
     Dates: start: 2017, end: 2017

REACTIONS (14)
  - Psychiatric symptom [None]
  - Mood altered [None]
  - Fatigue [None]
  - Pain [None]
  - Psychopathic personality [None]
  - Mental disorder [None]
  - Loss of personal independence in daily activities [None]
  - C-reactive protein increased [None]
  - Headache [None]
  - Depression [None]
  - Anxiety [None]
  - Muscle spasms [None]
  - Blood thyroid stimulating hormone increased [None]
  - Dizziness [None]

NARRATIVE: CASE EVENT DATE: 2017
